FAERS Safety Report 18323775 (Version 1)
Quarter: 2020Q3

REPORT INFORMATION
  Report Type: Spontaneous
  Country: CN (occurrence: CN)
  Receive Date: 20200928
  Receipt Date: 20200928
  Transmission Date: 20201103
  Serious: Yes (Other)
  Sender: FDA-Public Use
  Company Number: CN-PFIZER INC-2020367067

PATIENT
  Age: 39 Year
  Sex: Male
  Weight: 93.6 kg

DRUGS (3)
  1. METHOTREXATE. [Suspect]
     Active Substance: METHOTREXATE
     Dosage: 20 MG, 1X/DAY
     Route: 041
     Dates: start: 20200510, end: 20200510
  2. ENDOXAN [CYCLOPHOSPHAMIDE] [Suspect]
     Active Substance: CYCLOPHOSPHAMIDE
     Indication: APLASTIC ANAEMIA
     Dosage: 1.3 G, 1X/DAY
     Route: 041
     Dates: start: 20200428, end: 20200501
  3. METHOTREXATE. [Suspect]
     Active Substance: METHOTREXATE
     Indication: APLASTIC ANAEMIA
     Dosage: 30 MG, 1X/DAY
     Route: 041
     Dates: start: 20200508, end: 20200508

REACTIONS (1)
  - Cystitis haemorrhagic [Recovering/Resolving]

NARRATIVE: CASE EVENT DATE: 20200511
